FAERS Safety Report 9756258 (Version 1)
Quarter: 2013Q4

REPORT INFORMATION
  Report Type: Spontaneous
  Country: US (occurrence: US)
  Receive Date: 20131213
  Receipt Date: 20131213
  Transmission Date: 20140711
  Serious: No
  Sender: FDA-Public Use
  Company Number: US-GLAXOSMITHKLINE-A1036585A

PATIENT
  Age: 59 Year
  Sex: Male

DRUGS (1)
  1. NICODERM CQ CLEAR 21MG [Suspect]
     Indication: EX-TOBACCO USER
     Dates: start: 20130803, end: 20130804

REACTIONS (6)
  - Insomnia [Recovered/Resolved]
  - Cough [Unknown]
  - Condition aggravated [Unknown]
  - Nervousness [Unknown]
  - Irritability [Unknown]
  - Feeling abnormal [Unknown]
